FAERS Safety Report 4566483-1 (Version None)
Quarter: 2005Q1

REPORT INFORMATION
  Report Type: 
  Country: None (occurrence: None)
  Receive Date: 20050128
  Receipt Date: 20050120
  Transmission Date: 20050727
  Serious: Yes (Hospitalization)
  Sender: FDA-Public Use
  Company Number: 200510080BWH

PATIENT
  Sex: Male
  Weight: 113.3993 kg

DRUGS (5)
  1. LEVITRA [Suspect]
     Dosage: 10 MG, TOTAL DAILY, ORAL
     Route: 048
     Dates: start: 20041212
  2. ACTOS [Concomitant]
  3. GLUCOPHAGE [Concomitant]
  4. LISINOPRIL [Concomitant]
  5. HYDROCHLOROTHIAZIDE [Concomitant]

REACTIONS (3)
  - HEMIPARESIS [None]
  - ISCHAEMIC STROKE [None]
  - SPEECH DISORDER [None]
